FAERS Safety Report 9330332 (Version 1)
Quarter: 2013Q2

REPORT INFORMATION
  Report Type: Report from Study
  Country: US (occurrence: US)
  Receive Date: 20130605
  Receipt Date: 20130605
  Transmission Date: 20140414
  Serious: Yes (Hospitalization)
  Sender: FDA-Public Use
  Company Number: US-ROCHE-1231825

PATIENT
  Sex: Female

DRUGS (3)
  1. PEGASYS [Suspect]
     Indication: HEPATITIS C
     Route: 065
     Dates: start: 20130224
  2. COPEGUS [Suspect]
     Indication: HEPATITIS C
     Dosage: 200 MG PILLS
     Route: 065
     Dates: start: 20130224
  3. INCIVEK [Suspect]
     Indication: HEPATITIS C
     Route: 065
     Dates: start: 20130224, end: 20130520

REACTIONS (10)
  - Anaemia [Not Recovered/Not Resolved]
  - Dyspnoea [Recovering/Resolving]
  - Dizziness [Recovered/Resolved]
  - Dehydration [Recovered/Resolved]
  - Dysstasia [Recovered/Resolved]
  - Platelet count decreased [Not Recovered/Not Resolved]
  - Dry skin [Recovered/Resolved]
  - Skin wrinkling [Recovered/Resolved]
  - Skin exfoliation [Recovered/Resolved]
  - Abasia [Recovered/Resolved]
